FAERS Safety Report 24592671 (Version 1)
Quarter: 2024Q4

REPORT INFORMATION
  Report Type: Spontaneous
  Country: US (occurrence: US)
  Receive Date: 20241108
  Receipt Date: 20241108
  Transmission Date: 20250115
  Serious: No
  Sender: CHATTEM
  Company Number: US-OPELLA-2024OHG037149

PATIENT
  Age: 68 Year
  Sex: Male

DRUGS (6)
  1. FEXOFENADINE [Suspect]
     Active Substance: FEXOFENADINE HYDROCHLORIDE
     Indication: Pruritus
     Route: 065
  2. FEXOFENADINE [Suspect]
     Active Substance: FEXOFENADINE HYDROCHLORIDE
     Indication: Erythema
  3. OXYCODONE [Concomitant]
     Active Substance: OXYCODONE
     Indication: Pruritus
     Route: 048
  4. OXYCODONE [Concomitant]
     Active Substance: OXYCODONE
     Indication: Erythema
  5. FENTANYL [Concomitant]
     Active Substance: FENTANYL
     Indication: Pruritus
     Route: 065
  6. FENTANYL [Concomitant]
     Active Substance: FENTANYL
     Indication: Erythema

REACTIONS (2)
  - Off label use [Unknown]
  - No adverse event [Unknown]
